FAERS Safety Report 11932053 (Version 6)
Quarter: 2016Q2

REPORT INFORMATION
  Report Type: Spontaneous
  Country: US (occurrence: US)
  Receive Date: 20160120
  Receipt Date: 20160519
  Transmission Date: 20160815
  Serious: No
  Sender: FDA-Public Use
  Company Number: US-PFIZER INC-2015471420

PATIENT
  Age: 62 Year
  Sex: Female
  Weight: 83.9 kg

DRUGS (3)
  1. IBRANCE [Suspect]
     Active Substance: PALBOCICLIB
     Dosage: 100 MG, CYCLIC (DAYS 1-21 Q 28 DAYS)
     Route: 048
     Dates: start: 2016
  2. IBRANCE [Suspect]
     Active Substance: PALBOCICLIB
     Indication: BREAST CANCER METASTATIC
     Dosage: 75 MG, CYCLIC (ONCE A DAY FROM DAY 1 TO DAY 21 EVERY 28 DAYS)
     Route: 048
     Dates: start: 20151214
  3. IBRANCE [Suspect]
     Active Substance: PALBOCICLIB
     Dosage: 75 MG, CYCLIC (14 DAYS ON AND 7 DAYS OFF)

REACTIONS (12)
  - White blood cell count decreased [Unknown]
  - Alopecia [Recovered/Resolved]
  - Breast cancer metastatic [Unknown]
  - Thyroxine decreased [Unknown]
  - Disease progression [Unknown]
  - Blood count abnormal [Unknown]
  - Abdominal pain upper [Unknown]
  - Hernia [Unknown]
  - Urinary tract infection [Unknown]
  - Blood pressure increased [Unknown]
  - Back pain [Unknown]
  - Pain in extremity [Unknown]

NARRATIVE: CASE EVENT DATE: 20151231
